FAERS Safety Report 8194233-9 (Version None)
Quarter: 2012Q1

REPORT INFORMATION
  Report Type: 
  Country: None (occurrence: None)
  Receive Date: 20120308
  Receipt Date: 20120227
  Transmission Date: 20120608
  Serious: Yes (Other)
  Sender: FDA-Public Use
  Company Number: US-VERTEX PHARMACEUTICALS INC.-AE-2012-002838

PATIENT
  Sex: Female
  Weight: 52.21 kg

DRUGS (3)
  1. RIBAVIRIN [Concomitant]
     Indication: HEPATITIS C
     Route: 048
     Dates: start: 20111118, end: 20120203
  2. PEGASYS [Concomitant]
     Indication: HEPATITIS C
     Route: 058
     Dates: start: 20111118, end: 20120203
  3. INCIVEK [Suspect]
     Indication: HEPATITIS C
     Route: 048
     Dates: start: 20111118, end: 20120201

REACTIONS (7)
  - SWELLING FACE [None]
  - ANAEMIA [None]
  - LIP SWELLING [None]
  - SKIN EXFOLIATION [None]
  - RASH MACULAR [None]
  - DYSPHAGIA [None]
  - LYMPHADENOPATHY [None]
